FAERS Safety Report 4982514-9 (Version None)
Quarter: 2006Q1

REPORT INFORMATION
  Report Type: 
  Country: None (occurrence: None)
  Receive Date: 20060227
  Receipt Date: 20051013
  Transmission Date: 20060701
  Serious: Yes (Hospitalization)
  Sender: FDA-Public Use
  Company Number: WAES0510USA07363

PATIENT
  Age: 63 Year
  Sex: Male

DRUGS (6)
  1. ZOCOR [Suspect]
     Indication: HYPERLIPIDAEMIA
     Dosage: 80 MG/DAILY/PO
     Route: 048
     Dates: end: 20051006
  2. HUMALOG [Concomitant]
  3. HYDRODIURIL [Concomitant]
  4. VERAPAMIL MSD LP [Concomitant]
  5. CLONAZEPAM [Concomitant]
  6. GEMFIBROZIL [Concomitant]

REACTIONS (1)
  - RHABDOMYOLYSIS [None]
